FAERS Safety Report 15429645 (Version 1)
Quarter: 2018Q3

REPORT INFORMATION
  Report Type: Spontaneous
  Country: US (occurrence: US)
  Receive Date: 20180926
  Receipt Date: 20180926
  Transmission Date: 20181010
  Serious: Yes (Other)
  Sender: FDA-Public Use
  Company Number: US-PFIZER INC-2018383594

PATIENT
  Sex: Female

DRUGS (1)
  1. GABAPENTIN. [Suspect]
     Active Substance: GABAPENTIN
     Dosage: 3200 MG, DAILY (TAKES 4 OF 800 MG TABLETS OF GABAPENTIN EACH DAY)

REACTIONS (2)
  - Gait disturbance [Unknown]
  - Neuropathy peripheral [Unknown]
